FAERS Safety Report 17175788 (Version 1)
Quarter: 2019Q4

REPORT INFORMATION
  Report Type: Report from Study
  Country: None (occurrence: CA)
  Receive Date: 20191219
  Receipt Date: 20191219
  Transmission Date: 20200122
  Serious: Yes (Hospitalization)
  Sender: FDA-Public Use
  Company Number: CA-ABBVIE-19K-028-3195414-00

PATIENT
  Age: 60 Year
  Sex: Male
  Weight: 45 kg

DRUGS (14)
  1. GLYBURIDE. [Concomitant]
     Active Substance: GLYBURIDE
     Indication: DIABETES MELLITUS
     Route: 048
     Dates: start: 200701
  2. ENTYVIO [Concomitant]
     Active Substance: VEDOLIZUMAB
     Route: 041
     Dates: start: 20190628
  3. ASPIRINE EC [Concomitant]
     Indication: PROPHYLAXIS
     Route: 048
     Dates: start: 20181113
  4. HUMIRA [Suspect]
     Active Substance: ADALIMUMAB
     Route: 058
     Dates: start: 20171206, end: 20180121
  5. SALOFALK [Concomitant]
     Indication: COLITIS ULCERATIVE
     Route: 054
     Dates: start: 20160203, end: 20160228
  6. SALBUTAMOL [Concomitant]
     Active Substance: ALBUTEROL
     Indication: CHRONIC OBSTRUCTIVE PULMONARY DISEASE
     Dosage: AS PER NEEDED
     Route: 055
     Dates: start: 20181113
  7. HUMIRA [Suspect]
     Active Substance: ADALIMUMAB
     Indication: COLITIS ULCERATIVE
     Route: 058
     Dates: start: 201410, end: 20171205
  8. SALOFALK [Concomitant]
     Route: 054
     Dates: start: 20181206
  9. HUMIRA [Suspect]
     Active Substance: ADALIMUMAB
     Route: 058
     Dates: start: 20180409, end: 20181226
  10. ENTYVIO [Concomitant]
     Active Substance: VEDOLIZUMAB
     Indication: COLITIS ULCERATIVE
     Route: 041
     Dates: start: 20190121, end: 20190628
  11. METFORMINE [Concomitant]
     Active Substance: METFORMIN HYDROCHLORIDE
     Indication: DIABETES MELLITUS
     Route: 048
     Dates: start: 201201
  12. CALCIUM + VITAMIN D [Concomitant]
     Active Substance: CALCIUM\VITAMIN D
     Indication: COLITIS ULCERATIVE
     Dosage: 500 + 400 MG+IU
     Route: 048
     Dates: start: 2015
  13. ULTIBRO BREEZHALER [Concomitant]
     Active Substance: GLYCOPYRRONIUM\INDACATEROL
     Indication: PROPHYLAXIS
     Dosage: 50 -100  MCG (MICROGRAM(S))
     Route: 055
     Dates: start: 201710
  14. NOVORAPID [Concomitant]
     Active Substance: INSULIN ASPART
     Indication: DIABETES MELLITUS
     Dosage: BETWEEN 2 AND 12 IU
     Route: 058
     Dates: start: 20191201, end: 20191205

REACTIONS (1)
  - Chronic obstructive pulmonary disease [Recovered/Resolved]

NARRATIVE: CASE EVENT DATE: 20191202
